FAERS Safety Report 21541553 (Version 1)
Quarter: 2022Q4

REPORT INFORMATION
  Report Type: Spontaneous
  Country: US (occurrence: None)
  Receive Date: 20221101
  Receipt Date: 20221101
  Transmission Date: 20230113
  Serious: Yes (Death)
  Sender: FDA-Public Use
  Company Number: None

PATIENT
  Age: 70 Year
  Sex: Female
  Weight: 72.57 kg

DRUGS (14)
  1. CAPECITABINE [Suspect]
     Active Substance: CAPECITABINE
     Indication: Gastric cancer
     Dosage: FREQUENCY : TWICE A DAY;?
     Route: 048
     Dates: start: 202208
  2. BISCOLAX [Concomitant]
     Active Substance: BISACODYL
  3. CALCIUM CARBONATE-VITAMIN D3 [Concomitant]
  4. DORZOLAMIDE [Concomitant]
     Active Substance: DORZOLAMIDE
  5. IRON [Concomitant]
     Active Substance: IRON
  6. MECLIZINE [Concomitant]
     Active Substance: MECLIZINE HYDROCHLORIDE
  7. MULTI-VITAMIN [Concomitant]
     Active Substance: .ALPHA.-TOCOPHEROL ACETATE, DL-\ASCORBIC ACID\CYANOCOBALAMIN\FLUORIDE ION\FOLIC ACID\NIACIN\PYRIDOXI
  8. NEBIVOLOL [Concomitant]
     Active Substance: NEBIVOLOL
  9. ONDANSETRON [Concomitant]
     Active Substance: ONDANSETRON
  10. ACETAMINOPHEN\OXYCODONE HYDROCHLORIDE [Concomitant]
     Active Substance: ACETAMINOPHEN\OXYCODONE HYDROCHLORIDE
  11. PROCHLORPERAZINE [Concomitant]
     Active Substance: PROCHLORPERAZINE
  12. ROSUVASTATIN [Concomitant]
     Active Substance: ROSUVASTATIN
  13. TRAVOPROST [Concomitant]
     Active Substance: TRAVOPROST
  14. HYDROCHLOROTHIAZIDE\TRIAMTERENE [Suspect]
     Active Substance: HYDROCHLOROTHIAZIDE\TRIAMTERENE

REACTIONS (1)
  - Death [None]
